FAERS Safety Report 24040811 (Version 1)
Quarter: 2024Q3

REPORT INFORMATION
  Report Type: Spontaneous
  Country: US (occurrence: None)
  Receive Date: 20240701
  Receipt Date: 20240701
  Transmission Date: 20241017
  Serious: Yes (Hospitalization)
  Sender: Public
  Company Number: None

PATIENT
  Sex: Female

DRUGS (3)
  1. VIGABATRIN [Suspect]
     Active Substance: VIGABATRIN
     Dosage: FREQUENCY : TWICE A DAY;?
     Route: 048
     Dates: start: 201711
  2. VIGABATRIN [Concomitant]
     Active Substance: VIGABATRIN
  3. EPIDIOLEX ORAL SOLV [Concomitant]

REACTIONS (1)
  - Urinary retention [None]
